FAERS Safety Report 4590701-7 (Version None)
Quarter: 2005Q1

REPORT INFORMATION
  Report Type: 
  Country: None (occurrence: None)
  Receive Date: 20050224
  Receipt Date: 20050216
  Transmission Date: 20050727
  Serious: Yes (Disabling, Other)
  Sender: FDA-Public Use
  Company Number: BR-MERCK-0502BRA00033

PATIENT
  Age: 60 Year
  Sex: Female
  Weight: 73 kg

DRUGS (2)
  1. SIMVASTATIN [Suspect]
     Indication: BLOOD CHOLESTEROL INCREASED
     Route: 048
     Dates: start: 20000415, end: 20000515
  2. [THERAPY UNSPECIFIED] [Concomitant]
     Indication: GASTRITIS
     Route: 065

REACTIONS (3)
  - NERVE ROOT LESION [None]
  - PARALYSIS [None]
  - SPINAL OSTEOARTHRITIS [None]
